FAERS Safety Report 9203897 (Version 1)
Quarter: 2013Q1

REPORT INFORMATION
  Report Type: Spontaneous
  Country: US (occurrence: None)
  Receive Date: 20120709
  Receipt Date: 20120709
  Transmission Date: 20140127
  Serious: No
  Sender: FDA-Public Use
  Company Number: 2012HGS-003533

PATIENT
  Age: 70 Year
  Sex: Female
  Weight: 77.11 kg

DRUGS (4)
  1. BENLYSTA [Suspect]
     Dosage: 1 IN 14 D
     Route: 041
     Dates: start: 20120412
  2. PLAQUENIL (HYDROXYCHLOROQUINE PHOSPHATE) [Concomitant]
  3. PREDNISONE (PREDNISONE) (PREDNISONE) [Concomitant]
  4. BABY ASPIRIN (ACETYLSALICYLIC) (ACETYLSALICYLIC ACID) [Concomitant]

REACTIONS (3)
  - Oral fungal infection [None]
  - Gastrooesophageal reflux disease [None]
  - Dysgeusia [None]
